FAERS Safety Report 4931849-4 (Version None)
Quarter: 2006Q1

REPORT INFORMATION
  Report Type: 
  Country: None (occurrence: None)
  Receive Date: 20060303
  Receipt Date: 20060215
  Transmission Date: 20060701
  Serious: Yes (Hospitalization)
  Sender: FDA-Public Use
  Company Number: PHBS2006JP02668

PATIENT

DRUGS (6)
  1. TEGRETOL [Suspect]
     Route: 048
  2. MAGNESIUM OXIDE [Suspect]
     Indication: CONSTIPATION
     Route: 048
  3. LAC B [Concomitant]
     Route: 048
  4. DAI-KENCHU-TO [Concomitant]
     Route: 048
  5. LAXOBERON [Concomitant]
     Route: 048
  6. ROHYPNOL [Concomitant]
     Route: 048

REACTIONS (2)
  - URETERIC OBSTRUCTION [None]
  - URINE ABNORMALITY [None]
